FAERS Safety Report 8413621-6 (Version None)
Quarter: 2012Q2

REPORT INFORMATION
  Report Type: 
  Country: None (occurrence: None)
  Receive Date: 20120605
  Receipt Date: 20120521
  Transmission Date: 20120825
  Serious: Yes (Death, Other)
  Sender: FDA-Public Use
  Company Number: US-ROCHE-1071982

PATIENT

DRUGS (5)
  1. XELODA [Suspect]
     Indication: RECTAL CANCER
  2. AVASTIN [Suspect]
     Indication: RECTAL CANCER
  3. FLUOROURACIL [Suspect]
     Indication: RECTAL CANCER
  4. FOLINIC ACID [Suspect]
     Indication: RECTAL CANCER
  5. OXALIPLATIN [Suspect]
     Indication: RECTAL CANCER

REACTIONS (10)
  - INTESTINAL OBSTRUCTION [None]
  - ILEUS [None]
  - WOUND INFECTION [None]
  - ABSCESS [None]
  - DIARRHOEA [None]
  - IMPAIRED HEALING [None]
  - PROCTALGIA [None]
  - WOUND DEHISCENCE [None]
  - ASPIRATION [None]
  - FATIGUE [None]
